FAERS Safety Report 9601053 (Version 2)
Quarter: 2013Q4

REPORT INFORMATION
  Report Type: Spontaneous
  Country: US (occurrence: US)
  Receive Date: 20131004
  Receipt Date: 20131004
  Transmission Date: 20140711
  Serious: No
  Sender: FDA-Public Use
  Company Number: US-AMGEN-USASP2013032450

PATIENT
  Age: 49 Year
  Sex: Male
  Weight: 113.38 kg

DRUGS (4)
  1. ENBREL [Suspect]
     Indication: PSORIASIS
     Dosage: 50 MG, QWK
     Route: 058
     Dates: start: 20130128
  2. HUMIRA [Concomitant]
     Dosage: UNK
  3. STELARA [Concomitant]
     Dosage: UNK
  4. MTX                                /00113801/ [Concomitant]
     Dosage: UNK

REACTIONS (3)
  - Skin plaque [Not Recovered/Not Resolved]
  - Therapeutic response decreased [Unknown]
  - Psoriasis [Unknown]
